FAERS Safety Report 8137408-7 (Version None)
Quarter: 2012Q1

REPORT INFORMATION
  Report Type: 
  Country: None (occurrence: None)
  Receive Date: 20120215
  Receipt Date: 20120207
  Transmission Date: 20120608
  Serious: Yes (Hospitalization)
  Sender: FDA-Public Use
  Company Number: AU-JNJFOC-20120200512

PATIENT
  Sex: Male

DRUGS (7)
  1. STELARA [Suspect]
     Route: 058
     Dates: start: 20110519
  2. STELARA [Suspect]
     Route: 058
     Dates: start: 20111111
  3. STELARA [Suspect]
     Route: 058
     Dates: start: 20110815
  4. STELARA [Suspect]
     Indication: PSORIASIS
     Route: 058
     Dates: start: 20100827
  5. STELARA [Suspect]
     Route: 058
     Dates: start: 20101119
  6. STELARA [Suspect]
     Route: 058
     Dates: start: 20110215
  7. CYCLOSPORINE [Concomitant]

REACTIONS (1)
  - CELLULITIS [None]
